FAERS Safety Report 7128807-0 (Version None)
Quarter: 2010Q4

REPORT INFORMATION
  Report Type: 
  Country: None (occurrence: None)
  Receive Date: 20101130
  Receipt Date: 20101117
  Transmission Date: 20110411
  Serious: Yes (Hospitalization)
  Sender: FDA-Public Use
  Company Number: US-ELI_LILLY_AND_COMPANY-US201011005280

PATIENT
  Sex: Female

DRUGS (5)
  1. HUMALOG MIX 75/25 [Suspect]
     Dosage: 35 U, EACH MORNING
     Dates: start: 20010101
  2. HUMALOG MIX 75/25 [Suspect]
     Dosage: 25 U, EACH EVENING
     Dates: start: 20010101
  3. HUMALOG MIX 75/25 [Suspect]
     Dosage: 20 U, EACH MORNING
  4. HUMALOG MIX 75/25 [Suspect]
     Dosage: 15 U, EACH EVENING
  5. XOLAIR [Concomitant]
     Indication: ASTHMA
     Dosage: UNK, MONTHLY (1/M)

REACTIONS (10)
  - ALTERED VISUAL DEPTH PERCEPTION [None]
  - ASTHENOPIA [None]
  - BLOOD GLUCOSE INCREASED [None]
  - DRY EYE [None]
  - EYE PAIN [None]
  - HEADACHE [None]
  - KNEE ARTHROPLASTY [None]
  - NAUSEA [None]
  - UNDERDOSE [None]
  - VISUAL ACUITY REDUCED [None]
